FAERS Safety Report 18536212 (Version 1)
Quarter: 2020Q4

REPORT INFORMATION
  Report Type: Spontaneous
  Country: US (occurrence: US)
  Receive Date: 20201123
  Receipt Date: 20201123
  Transmission Date: 20210114
  Serious: Yes (Hospitalization, Other)
  Sender: FDA-Public Use
  Company Number: NVSC2020US305369

PATIENT
  Sex: Female
  Weight: 108.84 kg

DRUGS (3)
  1. ADEMPAS [Concomitant]
     Active Substance: RIOCIGUAT
     Indication: PRODUCT USED FOR UNKNOWN INDICATION
     Route: 065
  2. MACITENTAN [Suspect]
     Active Substance: MACITENTAN
     Indication: PULMONARY ARTERIAL HYPERTENSION
     Dosage: 10 MG, QD
     Route: 048
  3. TREPROSTINIL. [Suspect]
     Active Substance: TREPROSTINIL
     Indication: PRODUCT USED FOR UNKNOWN INDICATION
     Route: 042

REACTIONS (12)
  - Dizziness [Unknown]
  - Blood pressure abnormal [Unknown]
  - Vision blurred [Unknown]
  - Device dislocation [Unknown]
  - Device leakage [Unknown]
  - Heart rate abnormal [Unknown]
  - Complication associated with device [Unknown]
  - Nausea [Unknown]
  - Oxygen saturation decreased [Unknown]
  - Fatigue [Unknown]
  - Underdose [Unknown]
  - Malaise [Unknown]
